FAERS Safety Report 4302300-2 (Version None)
Quarter: 2004Q1

REPORT INFORMATION
  Report Type: 
  Country: None (occurrence: None)
  Receive Date: 20040220
  Receipt Date: 20040210
  Transmission Date: 20041129
  Serious: Yes (Life-Threatening, Hospitalization)
  Sender: FDA-Public Use
  Company Number: 0400012EN0020P

PATIENT
  Age: 12 Year
  Sex: Male

DRUGS (1)
  1. ONCASPAR [Suspect]
     Indication: ACUTE LYMPHOCYTIC LEUKAEMIA
     Dosage: 3250 IU IM
     Route: 030
     Dates: start: 20030728, end: 20030728

REACTIONS (7)
  - ERYTHEMA [None]
  - HOARSENESS [None]
  - HYPOAESTHESIA ORAL [None]
  - OXYGEN SATURATION DECREASED [None]
  - RASH PRURITIC [None]
  - SWELLING FACE [None]
  - URTICARIA [None]
